FAERS Safety Report 18348305 (Version 1)
Quarter: 2020Q4

REPORT INFORMATION
  Report Type: Spontaneous
  Country: US (occurrence: US)
  Receive Date: 20201005
  Receipt Date: 20201005
  Transmission Date: 20210114
  Serious: Yes (Disabling, Other)
  Sender: FDA-Public Use
  Company Number: None

PATIENT
  Age: 16 Year
  Sex: Female
  Weight: 47.25 kg

DRUGS (2)
  1. VITAMINS [Concomitant]
     Active Substance: VITAMINS
  2. ART NATURALS HAND SANITIZER [Suspect]
     Active Substance: ALCOHOL
     Indication: COVID-19 PROPHYLAXIS
     Dates: start: 20200301, end: 20200601

REACTIONS (8)
  - Hypoaesthesia [None]
  - Hypotension [None]
  - Nervous system disorder [None]
  - Vision blurred [None]
  - Muscular weakness [None]
  - Pain [None]
  - Paraesthesia [None]
  - Decreased appetite [None]

NARRATIVE: CASE EVENT DATE: 20200325
